FAERS Safety Report 5583468-7 (Version None)
Quarter: 2007Q4

REPORT INFORMATION
  Report Type: 
  Country: None (occurrence: None)
  Receive Date: 20071130
  Receipt Date: 20061115
  Transmission Date: 20080405
  Serious: Yes (Disabling)
  Sender: FDA-Public Use
  Company Number: WAES 0611USA04976

PATIENT
  Age: 69 Year
  Sex: Female

DRUGS (6)
  1. FOSAMAX [Suspect]
     Indication: OSTEOPOROSIS
     Dosage: 70 MG/WKY/PO
     Route: 047
     Dates: start: 20050501, end: 20061001
  2. INDOCIN [Concomitant]
  3. TYLENOL (CAPLET) [Concomitant]
  4. VICODIN [Concomitant]
  5. ANALGESIC OR ANESTHETIC (UNSPECI [Concomitant]
  6. NAPROXEN [Concomitant]

REACTIONS (4)
  - ABDOMINAL PAIN [None]
  - ARTHRALGIA [None]
  - GROIN PAIN [None]
  - MYALGIA [None]
